FAERS Safety Report 25025620 (Version 1)
Quarter: 2025Q1

REPORT INFORMATION
  Report Type: Spontaneous
  Country: IT (occurrence: IT)
  Receive Date: 20250228
  Receipt Date: 20250228
  Transmission Date: 20250409
  Serious: Yes (Other)
  Sender: ABBVIE
  Company Number: None

PATIENT
  Age: 60 Year
  Sex: Male

DRUGS (1)
  1. CIPRALEX [Suspect]
     Active Substance: ESCITALOPRAM OXALATE
     Indication: Intentional self-injury
     Route: 048

REACTIONS (4)
  - Tremor [Recovering/Resolving]
  - Intentional overdose [Unknown]
  - Drug abuse [Recovering/Resolving]
  - Sedation [Recovering/Resolving]
